FAERS Safety Report 4340480-3 (Version None)
Quarter: 2004Q2

REPORT INFORMATION
  Report Type: 
  Country: None (occurrence: None)
  Receive Date: 20040414
  Receipt Date: 20040405
  Transmission Date: 20050107
  Serious: Yes (Hospitalization, Other)
  Sender: FDA-Public Use
  Company Number: 200410268BVD

PATIENT
  Age: 30 Year
  Sex: Female

DRUGS (2)
  1. AVELOX [Suspect]
     Indication: BRONCHITIS
     Dosage: 400 MG, TOTAL DAILY, ORAL
     Route: 048
     Dates: start: 20040209
  2. THYROXIN [Concomitant]

REACTIONS (4)
  - ANAPHYLACTIC SHOCK [None]
  - DERMATITIS ALLERGIC [None]
  - EXANTHEM [None]
  - HYPERTHERMIA [None]
